FAERS Safety Report 19511995 (Version 1)
Quarter: 2021Q3

REPORT INFORMATION
  Report Type: Spontaneous
  Country: US (occurrence: US)
  Receive Date: 20210709
  Receipt Date: 20210709
  Transmission Date: 20211014
  Serious: No
  Sender: FDA-Public Use
  Company Number: US-TEVA-2021-US-1930684

PATIENT
  Sex: Male

DRUGS (2)
  1. HYDROCODONE [Suspect]
     Active Substance: HYDROCODONE
     Indication: PAIN
     Route: 065
     Dates: start: 2021
  2. AMOXICILLIN. [Suspect]
     Active Substance: AMOXICILLIN
     Dosage: 7 DAYS
     Dates: start: 2021

REACTIONS (2)
  - Flatulence [Unknown]
  - Constipation [Unknown]
